FAERS Safety Report 8325048-6 (Version None)
Quarter: 2012Q2

REPORT INFORMATION
  Report Type: 
  Country: None (occurrence: None)
  Receive Date: 20120501
  Receipt Date: 20120425
  Transmission Date: 20120825
  Serious: Yes (Hospitalization, Other)
  Sender: FDA-Public Use
  Company Number: JP-PFIZER INC-2012087863

PATIENT
  Age: 38 Year
  Sex: Male

DRUGS (1)
  1. ZITHROMAX [Suspect]
     Dosage: 500 MG (2 TABLETS OF 250 MG) 1X/DAY
     Route: 048
     Dates: start: 20120407, end: 20120407

REACTIONS (2)
  - EPILEPSY [None]
  - DYSGEUSIA [None]
